FAERS Safety Report 9522877 (Version 2)
Quarter: 2013Q3

REPORT INFORMATION
  Report Type: Spontaneous
  Country: US (occurrence: US)
  Receive Date: 20130913
  Receipt Date: 20130913
  Transmission Date: 20140515
  Serious: Yes (Death, Other)
  Sender: FDA-Public Use
  Company Number: US-TAKEDA-TPA2012A10625

PATIENT
  Sex: 0

DRUGS (3)
  1. ACTOS [Suspect]
     Indication: TYPE 2 DIABETES MELLITUS
     Dosage: 30 MG, UNK
     Dates: start: 200303, end: 200605
  2. ACTOS [Suspect]
     Dosage: 30 MG, UNK
     Dates: start: 200612, end: 200710
  3. GLUCOTROL [Concomitant]
     Dosage: 10 MG, UNK
     Dates: start: 200605, end: 200612

REACTIONS (1)
  - Bladder cancer [Fatal]
